FAERS Safety Report 17582645 (Version 1)
Quarter: 2020Q1

REPORT INFORMATION
  Report Type: Report from Study
  Country: SI (occurrence: SI)
  Receive Date: 20200325
  Receipt Date: 20200325
  Transmission Date: 20200409
  Serious: Yes (Hospitalization)
  Sender: FDA-Public Use
  Company Number: SI-B.I. PHARMACEUTICALS,INC./RIDGEFIELD-2020-BI-015651

PATIENT
  Age: 73 Year
  Sex: Female

DRUGS (3)
  1. PRAXBIND [Suspect]
     Active Substance: IDARUCIZUMAB
     Indication: HAEMATURIA
  2. PRAXBIND [Suspect]
     Active Substance: IDARUCIZUMAB
     Indication: PROCOAGULANT THERAPY
     Dosage: TWO 50-ML BOLUS INFUSIONS, EACH CONTAINING 2.5 G OF IDARUCIZUMAB
     Route: 042
  3. PRAXBIND [Suspect]
     Active Substance: IDARUCIZUMAB
     Indication: GASTROINTESTINAL HAEMORRHAGE

REACTIONS (1)
  - Haemorrhage [Recovering/Resolving]
